FAERS Safety Report 18286667 (Version 1)
Quarter: 2020Q3

REPORT INFORMATION
  Report Type: Spontaneous
  Country: US (occurrence: US)
  Receive Date: 20200921
  Receipt Date: 20200921
  Transmission Date: 20201103
  Serious: No
  Sender: FDA-Public Use
  Company Number: US-GLAXOSMITHKLINE-US2020183695

PATIENT
  Age: 59 Year
  Sex: Male

DRUGS (3)
  1. ABREVA [Suspect]
     Active Substance: DOCOSANOL
     Indication: PAIN
  2. ABREVA [Suspect]
     Active Substance: DOCOSANOL
     Indication: PAIN
     Dosage: UNK
     Dates: start: 202008, end: 202009
  3. ABREVA [Suspect]
     Active Substance: DOCOSANOL
     Indication: HYPERAESTHESIA TEETH
     Dosage: UNK
     Dates: start: 202008, end: 202009

REACTIONS (4)
  - Off label use [Unknown]
  - Drug ineffective for unapproved indication [Unknown]
  - Product use in unapproved indication [Unknown]
  - Product use issue [Unknown]
